FAERS Safety Report 21621719 (Version 1)
Quarter: 2022Q4

REPORT INFORMATION
  Report Type: Spontaneous
  Country: US (occurrence: None)
  Receive Date: 20221118
  Receipt Date: 20221118
  Transmission Date: 20230112
  Serious: Yes (Hospitalization)
  Sender: FDA-Public Use
  Company Number: None

PATIENT
  Sex: Male

DRUGS (2)
  1. PHOSPHOLINE IODIDE OPHTHALMIC [Suspect]
     Active Substance: ECHOTHIOPHATE IODIDE
     Indication: Glaucoma
     Dosage: OTHER QUANTITY : 0.125%;?INSTILL 2 DROPS INTO THE RIGHT EYE TWICE DAILY AS DIRECTED?
     Route: 047
     Dates: start: 20221004
  2. GLUCOS/CHOND CAP [Concomitant]

REACTIONS (1)
  - Cholelithiasis [None]
